FAERS Safety Report 9269530 (Version 1)
Quarter: 2013Q2

REPORT INFORMATION
  Report Type: Spontaneous
  Country: US (occurrence: US)
  Receive Date: 20130503
  Receipt Date: 20130503
  Transmission Date: 20140414
  Serious: Yes (Disabling, Other)
  Sender: FDA-Public Use
  Company Number: US-PFIZER INC-2013137868

PATIENT
  Age: 55 Year
  Sex: Male
  Weight: 92.52 kg

DRUGS (4)
  1. LYRICA [Suspect]
     Indication: NEURALGIA
     Dosage: 150 MG, 3X/DAY
     Route: 048
     Dates: start: 2006
  2. LYRICA [Suspect]
     Dosage: 300 MG, 3X/DAY
     Route: 048
  3. LYRICA [Suspect]
     Route: 048
  4. IBUPROFEN [Concomitant]
     Dosage: 300 MG, 1X/DAY

REACTIONS (11)
  - Tibia fracture [Unknown]
  - Joint injury [Unknown]
  - Weight increased [Unknown]
  - Hypertension [Unknown]
  - Nerve injury [Unknown]
  - Pain in extremity [Unknown]
  - Depression [Unknown]
  - Weight decreased [Unknown]
  - Gastric disorder [Unknown]
  - Poor peripheral circulation [Unknown]
  - Pain [Not Recovered/Not Resolved]
